FAERS Safety Report 9529619 (Version 9)
Quarter: 2015Q3

REPORT INFORMATION
  Report Type: Report from Study
  Country: FR (occurrence: FR)
  Receive Date: 20130917
  Receipt Date: 20150729
  Transmission Date: 20151125
  Serious: Yes (Death, Other)
  Sender: FDA-Public Use
  Company Number: FR-ROCHE-1060899

PATIENT

DRUGS (5)
  1. RIBAVIRIN. [Suspect]
     Active Substance: RIBAVIRIN
     Indication: HEPATITIS C
     Dosage: 1000 OR 1200 MG/DAY, ACCORDING TO BODY WEIGHT AND  800 OR 1400 MG/DAY, ACCORDING TO BODY WEIGHT
     Route: 048
  2. TELAPREVIR [Suspect]
     Active Substance: TELAPREVIR
     Indication: HEPATITIS C
     Route: 065
  3. BOCEPREVIR [Suspect]
     Active Substance: BOCEPREVIR
     Indication: HEPATITIS C
     Route: 065
  4. PEGINTERFERON ALFA-2B [Suspect]
     Active Substance: PEGINTERFERON ALFA-2B
     Indication: HEPATITIS C
     Route: 065
  5. PEG-INTERFERON ALFA 2A [Suspect]
     Active Substance: PEGINTERFERON ALFA-2A
     Indication: HEPATITIS C
     Route: 065

REACTIONS (19)
  - Endocarditis [Fatal]
  - Skin infection [Unknown]
  - Anaemia [Unknown]
  - Thrombocytopenia [Unknown]
  - Ascites [Unknown]
  - Infection [Unknown]
  - Cholecystitis acute [Unknown]
  - Asthenia [Unknown]
  - Hepatic failure [Fatal]
  - Encephalopathy [Unknown]
  - Rash [Unknown]
  - Food poisoning [Unknown]
  - Neutropenia [Unknown]
  - Pyelonephritis acute [Unknown]
  - Lung infection [Unknown]
  - Sepsis [Fatal]
  - Pneumonia [Fatal]
  - Bleeding varicose vein [Unknown]
  - Diarrhoea infectious [Unknown]
